FAERS Safety Report 10670355 (Version 1)
Quarter: 2014Q4

REPORT INFORMATION
  Report Type: Spontaneous
  Country: GB (occurrence: GB)
  Receive Date: 20141223
  Receipt Date: 20141223
  Transmission Date: 20150529
  Serious: Yes (Other)
  Sender: FDA-Public Use
  Company Number: GB-AUROBINDO-AUR-APL-2014-13038

PATIENT
  Age: 34 Year
  Sex: Female
  Weight: 63.4 kg

DRUGS (1)
  1. BISOPROLOL 2.5 MG [Suspect]
     Active Substance: BISOPROLOL
     Indication: EXTRASYSTOLES
     Dosage: 2.5 MG, UNK
     Route: 048
     Dates: start: 20140808, end: 20141203

REACTIONS (6)
  - Eye pruritus [Not Recovered/Not Resolved]
  - Tinnitus [Unknown]
  - Peripheral coldness [Not Recovered/Not Resolved]
  - Alopecia [Not Recovered/Not Resolved]
  - Sneezing [Not Recovered/Not Resolved]
  - Ocular hyperaemia [Not Recovered/Not Resolved]

NARRATIVE: CASE EVENT DATE: 20140814
